FAERS Safety Report 7329223-9 (Version None)
Quarter: 2011Q1

REPORT INFORMATION
  Report Type: 
  Country: None (occurrence: None)
  Receive Date: 20110303
  Receipt Date: 20110225
  Transmission Date: 20110831
  Serious: Yes (Hospitalization)
  Sender: FDA-Public Use
  Company Number: A0915396A

PATIENT
  Age: 73 Year
  Sex: Male

DRUGS (2)
  1. COMBIVENT [Concomitant]
  2. ADVAIR DISKUS 100/50 [Suspect]
     Indication: ASTHMA
     Dosage: 1PUFF TWICE PER DAY
     Route: 055

REACTIONS (4)
  - LIMB DISCOMFORT [None]
  - FLATULENCE [None]
  - MYOCARDIAL INFARCTION [None]
  - DISCOMFORT [None]
